FAERS Safety Report 13630085 (Version 1)
Quarter: 2017Q2

REPORT INFORMATION
  Report Type: Spontaneous
  Country: US (occurrence: US)
  Receive Date: 20170608
  Receipt Date: 20170608
  Transmission Date: 20170830
  Serious: Yes (Other)
  Sender: FDA-Public Use
  Company Number: US-BAYER-2017-104592

PATIENT
  Age: 22 Year
  Sex: Female

DRUGS (1)
  1. SKYLA [Suspect]
     Active Substance: LEVONORGESTREL
     Indication: CONTRACEPTION
     Dosage: 14 MCG/24HR, CONT
     Route: 015
     Dates: start: 20170404

REACTIONS (3)
  - Amenorrhoea [Not Recovered/Not Resolved]
  - Genital haemorrhage [None]
  - Menorrhagia [Recovered/Resolved]

NARRATIVE: CASE EVENT DATE: 201704
